FAERS Safety Report 8591217-3 (Version None)
Quarter: 2012Q3

REPORT INFORMATION
  Report Type: 
  Country: None (occurrence: None)
  Receive Date: 20120813
  Receipt Date: 20120731
  Transmission Date: 20120928
  Serious: Yes (Hospitalization, Other)
  Sender: FDA-Public Use
  Company Number: JP-ROCHE-1091643

PATIENT
  Sex: Female

DRUGS (15)
  1. COPEGUS [Suspect]
     Indication: HEPATITIS C
     Route: 048
     Dates: start: 20110328, end: 20110508
  2. COPEGUS [Suspect]
     Route: 048
     Dates: start: 20110531, end: 20110606
  3. TMC435 (NS3/4A PROTEASE INHIBITOR) [Suspect]
     Indication: HEPATITIS C
     Route: 048
     Dates: start: 20110328, end: 20110620
  4. COPEGUS [Suspect]
     Route: 048
     Dates: start: 20110628, end: 20110913
  5. COPEGUS [Suspect]
     Route: 048
     Dates: start: 20110509, end: 20110523
  6. COPEGUS [Suspect]
     Route: 048
     Dates: start: 20110607, end: 20110613
  7. PEGASYS [Suspect]
     Route: 058
     Dates: start: 20110509, end: 20110509
  8. PEGASYS [Suspect]
     Route: 058
     Dates: start: 20110510, end: 20110530
  9. PEGASYS [Suspect]
     Indication: HEPATITIS C
     Route: 058
     Dates: start: 20110328, end: 20110508
  10. COPEGUS [Suspect]
     Route: 048
     Dates: start: 20110524, end: 20110530
  11. COPEGUS [Suspect]
     Route: 048
     Dates: start: 20110620, end: 20110627
  12. CETIRIZINE HYDROCHLORIDE [Concomitant]
     Route: 048
  13. PEGASYS [Suspect]
     Route: 058
     Dates: start: 20110531, end: 20110531
  14. PEGASYS [Suspect]
     Route: 058
     Dates: start: 20110601, end: 20110906
  15. COPEGUS [Suspect]
     Route: 048
     Dates: start: 20110614, end: 20110619

REACTIONS (2)
  - MYOPATHY [None]
  - SARCOIDOSIS [None]
